FAERS Safety Report 19728783 (Version 1)
Quarter: 2021Q3

REPORT INFORMATION
  Report Type: Spontaneous
  Country: US (occurrence: US)
  Receive Date: 20210820
  Receipt Date: 20210820
  Transmission Date: 20211014
  Serious: No
  Sender: FDA-Public Use
  Company Number: US-G1-000310

PATIENT
  Age: 66 Year
  Sex: Male

DRUGS (8)
  1. 3192909 (GLOBALC3SEP20): ATEZOLIZUMAB [Concomitant]
     Dates: start: 20210614, end: 20210615
  2. COSELA [Suspect]
     Active Substance: TRILACICLIB DIHYDROCHLORIDE
     Indication: MYELOSUPPRESSION
     Dosage: CYCLE 2
     Route: 042
     Dates: start: 20210615, end: 20210616
  3. 1082599 (GLOBALC3SEP20): ETOPOSIDE [Concomitant]
     Dates: start: 20210614, end: 20210615
  4. 1082599 (GLOBALC3SEP20): ETOPOSIDE [Concomitant]
     Dates: start: 20210524, end: 20210526
  5. COSELA [Suspect]
     Active Substance: TRILACICLIB DIHYDROCHLORIDE
     Indication: MYELOSUPPRESSION
     Dosage: CYCLE 1
     Route: 042
     Dates: start: 20210524, end: 20210526
  6. 36671 (GLOBALC3SEP20): CARBOPLATIN [Concomitant]
     Dates: start: 20210614, end: 20210615
  7. 36671 (GLOBALC3SEP20): CARBOPLATIN [Concomitant]
     Dates: start: 20210524, end: 20210526
  8. 3192909 (GLOBALC3SEP20): ATEZOLIZUMAB [Concomitant]
     Dates: start: 20210524, end: 20210526

REACTIONS (2)
  - Product dose omission issue [Recovered/Resolved]
  - Medication error [Recovered/Resolved]

NARRATIVE: CASE EVENT DATE: 20210614
